FAERS Safety Report 5450892-2 (Version None)
Quarter: 2007Q3

REPORT INFORMATION
  Report Type: 
  Country: None (occurrence: None)
  Receive Date: 20070911
  Receipt Date: 20070904
  Transmission Date: 20080115
  Serious: Yes (Hospitalization)
  Sender: FDA-Public Use
  Company Number: 2007BI017299

PATIENT
  Age: 50 Year
  Sex: Female

DRUGS (2)
  1. AVONEX [Suspect]
     Indication: MULTIPLE SCLEROSIS
     Dosage: 30 UG;QW; IM
     Route: 030
     Dates: start: 19990901, end: 20070508
  2. MYCOPHENOLATE MOFETIL [Concomitant]

REACTIONS (3)
  - IMMUNOSUPPRESSION [None]
  - PNEUMONIA [None]
  - SINUSITIS [None]
